FAERS Safety Report 9214430 (Version 2)
Quarter: 2014Q1

REPORT INFORMATION
  Report Type: Spontaneous
  Country: US (occurrence: US)
  Receive Date: 20130405
  Receipt Date: 20140203
  Transmission Date: 20141002
  Serious: Yes (Other)
  Sender: FDA-Public Use
  Company Number: US-BAYER-2013-040546

PATIENT
  Age: 25 Year
  Sex: Female

DRUGS (4)
  1. YAZ [Suspect]
     Indication: ACNE
  2. YASMIN [Suspect]
     Indication: ACNE
  3. OCELLA [Suspect]
     Indication: ACNE
  4. METFORMIN [Concomitant]
     Dosage: 500 MG, UNK
     Route: 048
     Dates: start: 20091130

REACTIONS (6)
  - Cholecystitis [None]
  - Cholecystitis [None]
  - Biliary dyskinesia [None]
  - Injury [None]
  - Pain [None]
  - Pain [None]
